FAERS Safety Report 17950404 (Version 3)
Quarter: 2020Q3

REPORT INFORMATION
  Report Type: Report from Study
  Country: US (occurrence: US)
  Receive Date: 20200626
  Receipt Date: 20200820
  Transmission Date: 20201103
  Serious: No
  Sender: FDA-Public Use
  Company Number: NVSC2020US180735

PATIENT
  Sex: Female

DRUGS (1)
  1. COSENTYX [Suspect]
     Active Substance: SECUKINUMAB
     Indication: PSORIASIS
     Dosage: UNK (BENEATH THE SKIN)
     Route: 058

REACTIONS (4)
  - Dry skin [Unknown]
  - Therapeutic response decreased [Unknown]
  - Injection site bruising [Unknown]
  - Psoriasis [Unknown]
